FAERS Safety Report 8082805-1 (Version None)
Quarter: 2012Q1

REPORT INFORMATION
  Report Type: 
  Country: None (occurrence: None)
  Receive Date: 20120127
  Receipt Date: 20110211
  Transmission Date: 20120608
  Serious: No
  Sender: FDA-Public Use
  Company Number: US-ABBOTT-11P-163-0705097-00

PATIENT
  Sex: Female
  Weight: 71.732 kg

DRUGS (16)
  1. LYRICA [Concomitant]
     Indication: FIBROMYALGIA
  2. OMEPRAZOLE [Concomitant]
     Indication: GASTROOESOPHAGEAL REFLUX DISEASE
  3. FOLIC ACID [Concomitant]
     Indication: VITAMIN SUPPLEMENTATION
  4. ZOLPIDEM [Concomitant]
     Indication: INSOMNIA
  5. ASPIRIN [Concomitant]
     Indication: PROPHYLAXIS
  6. HYDROCHLOROTHIAZIDE [Concomitant]
     Indication: HYPERTENSION
  7. CLONAZEPAM [Concomitant]
     Indication: INSOMNIA
  8. METHOTREXATE [Concomitant]
     Indication: PSORIATIC ARTHROPATHY
  9. ASPIRIN [Concomitant]
     Indication: CARDIAC DISORDER
  10. HUMIRA [Suspect]
     Indication: PSORIATIC ARTHROPATHY
     Dates: start: 20081205
  11. PRAVASTATIN [Concomitant]
     Indication: BLOOD CHOLESTEROL INCREASED
  12. ULTRAM [Concomitant]
     Indication: PAIN
  13. VERAPAMIL [Concomitant]
     Indication: HYPERTENSION
  14. VITAMIN D [Concomitant]
     Indication: VITAMIN SUPPLEMENTATION
  15. VALTREX [Concomitant]
     Indication: HERPES VIRUS INFECTION
  16. ENALAPRIL [Concomitant]
     Indication: HYPERTENSION

REACTIONS (7)
  - HEART RATE IRREGULAR [None]
  - EAR PAIN [None]
  - TOOTHACHE [None]
  - SINUSITIS [None]
  - DIZZINESS [None]
  - ASTHENIA [None]
  - FACIAL PAIN [None]
